FAERS Safety Report 8265362-6 (Version None)
Quarter: 2012Q2

REPORT INFORMATION
  Report Type: 
  Country: None (occurrence: None)
  Receive Date: 20120406
  Receipt Date: 20120330
  Transmission Date: 20120825
  Serious: Yes (Other)
  Sender: FDA-Public Use
  Company Number: US-US-EMD SERONO, INC.-7123122

PATIENT
  Sex: Female

DRUGS (1)
  1. REBIF [Suspect]
     Indication: PRODUCT USED FOR UNKNOWN INDICATION
     Route: 058
     Dates: start: 20120109

REACTIONS (4)
  - DYSMENORRHOEA [None]
  - INFLUENZA LIKE ILLNESS [None]
  - MENORRHAGIA [None]
  - INJECTION SITE ERYTHEMA [None]
